FAERS Safety Report 5330751-6 (Version None)
Quarter: 2007Q2

REPORT INFORMATION
  Report Type: 
  Country: None (occurrence: None)
  Receive Date: 20070522
  Receipt Date: 20070511
  Transmission Date: 20071010
  Serious: Yes (Hospitalization)
  Sender: FDA-Public Use
  Company Number: FRWYE637311MAY07

PATIENT
  Age: 11 Year
  Sex: Male
  Weight: 35 kg

DRUGS (2)
  1. RHINADVIL [Suspect]
     Indication: PYREXIA
     Dosage: UNKNOWN
     Route: 048
     Dates: start: 20070321, end: 20070404
  2. VENTOLIN [Concomitant]

REACTIONS (3)
  - OVERDOSE [None]
  - PNEUMOCOCCAL INFECTION [None]
  - PNEUMONIA [None]
